FAERS Safety Report 22077674 (Version 9)
Quarter: 2023Q2

REPORT INFORMATION
  Report Type: Report from Study
  Country: US (occurrence: None)
  Receive Date: 20230309
  Receipt Date: 20230612
  Transmission Date: 20230722
  Serious: Yes (Hospitalization)
  Sender: FDA-Public Use
  Company Number: US-ROCHE-3300225

PATIENT
  Age: 57 Year
  Sex: Female

DRUGS (3)
  1. ATEZOLIZUMAB [Suspect]
     Active Substance: ATEZOLIZUMAB
     Indication: Endometrial cancer
     Dosage: LAST DOSE OF ATEZOLIZUMAB PRIOR TO SAE : 16/FEB/2023, 21/MAR/2023 RESTARTED
     Route: 041
     Dates: start: 20230216
  2. BEVACIZUMAB [Suspect]
     Active Substance: BEVACIZUMAB
     Indication: Endometrial cancer
     Dosage: LAST DOSE OF BEVACIZUMAB PRIOR TO SAE : 16/FEB/2023, 21/MAR/2023 RESTARTED
     Route: 042
     Dates: start: 20230216
  3. HEPARIN [Concomitant]
     Active Substance: HEPARIN SODIUM

REACTIONS (1)
  - Embolism [Recovered/Resolved]

NARRATIVE: CASE EVENT DATE: 20230301
